FAERS Safety Report 9198796 (Version 1)
Quarter: 2013Q1

REPORT INFORMATION
  Report Type: Spontaneous
  Country: US (occurrence: None)
  Receive Date: 20130327
  Receipt Date: 20130327
  Transmission Date: 20140127
  Serious: Yes (Other)
  Sender: FDA-Public Use
  Company Number: None

PATIENT
  Age: 28 Year
  Sex: Female
  Weight: 53.98 kg

DRUGS (1)
  1. LAMOTRIGINE [Suspect]
     Indication: CONVULSION

REACTIONS (3)
  - Convulsion [None]
  - Condition aggravated [None]
  - Dizziness [None]
